FAERS Safety Report 5507481-0 (Version None)
Quarter: 2007Q4

REPORT INFORMATION
  Report Type: 
  Country: None (occurrence: None)
  Receive Date: 20071102
  Receipt Date: 20071019
  Transmission Date: 20080405
  Serious: Yes (Other)
  Sender: FDA-Public Use
  Company Number: VNL_00627_2007

PATIENT
  Sex: Male

DRUGS (4)
  1. APO-GO (APO-GO PFS 5 MG/ML SOLUTION FOR INFUSION IN PRE-FILLED SYRINGE [Suspect]
     Indication: PARKINSON'S DISEASE
     Dosage: HOUR FOR 5 YEARS 5 MONTHS FOR 12 HOURS PER DAY SUBCUTANEOUS)
     Route: 058
     Dates: start: 20020201
  2. MADOPAR /00349201/ [Concomitant]
  3. RASAGILINE [Concomitant]
  4. FINASTERIDE [Concomitant]

REACTIONS (3)
  - COOMBS POSITIVE HAEMOLYTIC ANAEMIA [None]
  - FATIGUE [None]
  - JAUNDICE [None]
